FAERS Safety Report 19898867 (Version 1)
Quarter: 2021Q3

REPORT INFORMATION
  Report Type: Spontaneous
  Country: CA (occurrence: CA)
  Receive Date: 20210929
  Receipt Date: 20210929
  Transmission Date: 20211014
  Serious: Yes (Hospitalization, Other)
  Sender: FDA-Public Use
  Company Number: CA-SAMSUNG BIOEPIS-SB-2021-23004

PATIENT
  Age: 19 Year
  Sex: Male

DRUGS (3)
  1. INFLIXIMAB [Suspect]
     Active Substance: INFLIXIMAB
     Indication: COLITIS ULCERATIVE
     Route: 042
  2. ACETAMINOPHEN. [Concomitant]
     Active Substance: ACETAMINOPHEN
     Indication: PREMEDICATION
     Route: 065
  3. DESOXIMETASONE. [Concomitant]
     Active Substance: DESOXIMETASONE
     Indication: PRODUCT USED FOR UNKNOWN INDICATION
     Dosage: UNKNOWN
     Route: 065

REACTIONS (13)
  - Inappropriate schedule of product administration [Unknown]
  - Blood pressure fluctuation [Unknown]
  - Intentional product use issue [Unknown]
  - Abdominal distension [Unknown]
  - Product contamination [Unknown]
  - Melaena [Unknown]
  - Body temperature decreased [Unknown]
  - Weight decreased [Unknown]
  - Wrong product administered [Unknown]
  - Nausea [Unknown]
  - Off label use [Unknown]
  - Poor quality product administered [Unknown]
  - Constipation [Unknown]
